FAERS Safety Report 4632994-3 (Version None)
Quarter: 2005Q2

REPORT INFORMATION
  Report Type: 
  Country: None (occurrence: None)
  Receive Date: 20050411
  Receipt Date: 20050411
  Transmission Date: 20051028
  Serious: Yes (Life-Threatening)
  Sender: FDA-Public Use
  Company Number: None

PATIENT
  Age: 48 Year
  Sex: Female
  Weight: 71.2147 kg

DRUGS (1)
  1. ZOLOFT [Suspect]
     Indication: MENTAL DISORDER
     Dosage: ONCE A DAY
     Dates: start: 19960220, end: 19990226

REACTIONS (8)
  - FAECAL INCONTINENCE [None]
  - FEELING ABNORMAL [None]
  - GASTRIC DISORDER [None]
  - GASTRITIS [None]
  - MUSCLE SPASMS [None]
  - PAIN [None]
  - SCREAMING [None]
  - VOMITING [None]
